FAERS Safety Report 4333004-8 (Version None)
Quarter: 2004Q1

REPORT INFORMATION
  Report Type: 
  Country: None (occurrence: None)
  Receive Date: 20040330
  Receipt Date: 20040317
  Transmission Date: 20041129
  Serious: No
  Sender: FDA-Public Use
  Company Number: 04P-008-0254182-00

PATIENT
  Age: 66 Year
  Sex: Male

DRUGS (1)
  1. FERROGRADUMET TABLETS (FERO-GRADUMET FILMTAB) (FERROUS SULFATE) (FERRO [Suspect]
     Dosage: 350 MG, 1 IN 1 D, PER ORAL
     Route: 048

REACTIONS (3)
  - FOREIGN BODY TRAUMA [None]
  - NECROSIS [None]
  - PNEUMONIA [None]
